FAERS Safety Report 13781426 (Version 1)
Quarter: 2017Q3

REPORT INFORMATION
  Report Type: Spontaneous
  Country: US (occurrence: US)
  Receive Date: 20170723
  Receipt Date: 20170723
  Transmission Date: 20171127
  Serious: No
  Sender: FDA-Public Use
  Company Number: None

PATIENT
  Age: 66 Year
  Sex: Male

DRUGS (1)
  1. ZOLEDRONIC [Suspect]
     Active Substance: ZOLEDRONIC ACID
     Indication: HYPERCALCAEMIA OF MALIGNANCY
     Dates: start: 20160601, end: 20170613

REACTIONS (3)
  - Pain [None]
  - Osteonecrosis of jaw [None]
  - Tooth loss [None]

NARRATIVE: CASE EVENT DATE: 20170613
